FAERS Safety Report 4511138-2 (Version None)
Quarter: 2004Q4

REPORT INFORMATION
  Report Type: 
  Country: None (occurrence: None)
  Receive Date: 20041012
  Receipt Date: 20040629
  Transmission Date: 20050328
  Serious: No
  Sender: FDA-Public Use
  Company Number: PHEH2004US07037

PATIENT
  Age: 53 Year
  Sex: Female

DRUGS (1)
  1. ELIDEL [Suspect]
     Indication: ECZEMA
     Dosage: BID, TOPICAL
     Route: 061
     Dates: start: 20040301, end: 20040301

REACTIONS (5)
  - ARTHRALGIA [None]
  - EYE REDNESS [None]
  - FATIGUE [None]
  - HEADACHE [None]
  - MYALGIA [None]
